FAERS Safety Report 16701222 (Version 1)
Quarter: 2019Q3

REPORT INFORMATION
  Report Type: Spontaneous
  Country: CN (occurrence: CN)
  Receive Date: 20190814
  Receipt Date: 20190814
  Transmission Date: 20191004
  Serious: Yes (Hospitalization)
  Sender: FDA-Public Use
  Company Number: CN-ASTRAZENECA-2019SE35607

PATIENT
  Age: 48 Year
  Sex: Male
  Weight: 69 kg

DRUGS (9)
  1. BAYASPIRIN [Concomitant]
     Active Substance: ASPIRIN
     Indication: ANTIPLATELET THERAPY
     Route: 048
     Dates: start: 20181217, end: 20181226
  2. ROSUVASTATIN CALCIUM. [Concomitant]
     Active Substance: ROSUVASTATIN CALCIUM
     Indication: HYPERLIPIDAEMIA
     Route: 048
     Dates: start: 20181217, end: 20181228
  3. FUROSEMIDE. [Concomitant]
     Active Substance: FUROSEMIDE
     Indication: DIURETIC THERAPY
     Route: 048
     Dates: start: 20181217, end: 20190108
  4. INOSINE [Concomitant]
     Active Substance: INOSINE
     Indication: CORONARY ARTERY DISEASE
     Route: 048
     Dates: start: 20181217, end: 20181228
  5. IRBESARTAN. [Concomitant]
     Active Substance: IRBESARTAN
     Indication: HYPERTENSION
     Route: 048
     Dates: start: 20181217, end: 20181228
  6. METOPROLOL SUCCINATE. [Concomitant]
     Active Substance: METOPROLOL SUCCINATE
     Indication: HYPERTENSION
     Route: 048
     Dates: start: 20181217, end: 20190108
  7. BENZBROMARONE [Concomitant]
     Active Substance: BENZBROMARONE
     Indication: HYPERURICAEMIA
     Route: 048
     Dates: start: 20181220, end: 20181228
  8. SPIRONOLACTONE. [Concomitant]
     Active Substance: SPIRONOLACTONE
     Indication: DIURETIC THERAPY
     Route: 048
     Dates: start: 20181217, end: 20190108
  9. BRILINTA [Suspect]
     Active Substance: TICAGRELOR
     Indication: ANTIPLATELET THERAPY
     Route: 048
     Dates: start: 20181217, end: 20181226

REACTIONS (8)
  - Coronary artery disease [Unknown]
  - Gastrointestinal haemorrhage [Unknown]
  - Chronic gastritis [Unknown]
  - Gastric ulcer [Unknown]
  - Duodenitis [Unknown]
  - Cardiac failure congestive [Unknown]
  - Peptic ulcer [Unknown]
  - Troponin increased [Unknown]

NARRATIVE: CASE EVENT DATE: 201812
